FAERS Safety Report 24239918 (Version 1)
Quarter: 2024Q3

REPORT INFORMATION
  Report Type: Spontaneous
  Country: US (occurrence: US)
  Receive Date: 20240822
  Receipt Date: 20240822
  Transmission Date: 20241016
  Serious: Yes (Death, Hospitalization, Other)
  Sender: BIOMARIN
  Company Number: US-SA-2024SA186829

PATIENT

DRUGS (1)
  1. LARONIDASE [Suspect]
     Active Substance: LARONIDASE
     Indication: Mucopolysaccharidosis I
     Dosage: 26.1 (UNITS NOT PROVIDED), QW
     Route: 042
     Dates: start: 201509

REACTIONS (4)
  - Sepsis [Fatal]
  - Blood pressure decreased [Fatal]
  - Intestinal obstruction [Fatal]
  - Abdominal pain upper [Fatal]

NARRATIVE: CASE EVENT DATE: 20240618
